FAERS Safety Report 15899065 (Version 2)
Quarter: 2019Q1

REPORT INFORMATION
  Report Type: Spontaneous
  Country: JP (occurrence: JP)
  Receive Date: 20190201
  Receipt Date: 20190222
  Transmission Date: 20190417
  Serious: Yes (Life-Threatening, Hospitalization, Other)
  Sender: FDA-Public Use
  Company Number: JP-GLAXOSMITHKLINE-JP2019JPN013794

PATIENT
  Age: 78 Year
  Sex: Female
  Weight: 44 kg

DRUGS (8)
  1. VALTREX [Suspect]
     Active Substance: VALACYCLOVIR HYDROCHLORIDE
     Indication: HERPES ZOSTER
     Dosage: 500 MG, TID
     Route: 048
     Dates: start: 20190119, end: 20190120
  2. AMLODIPINE BESILATE TABLET [Suspect]
     Active Substance: AMLODIPINE BESYLATE
     Indication: HYPERTENSION
     Dosage: 5 MG, QD
     Route: 048
     Dates: end: 20190124
  3. TANATRIL [Suspect]
     Active Substance: IMIDAPRIL
     Indication: HYPERTENSION
     Dosage: 5 MG, QD
     Route: 048
     Dates: end: 20190124
  4. TIAPRIDE [Suspect]
     Active Substance: TIAPRIDE
     Indication: THALAMUS HAEMORRHAGE
     Dosage: 50 MG, QD
     Route: 048
     Dates: end: 20190124
  5. EBRANTIL (URAPIDIL) [Suspect]
     Active Substance: URAPIDIL
     Indication: DYSURIA
     Dosage: 15 MG, QD
     Route: 048
     Dates: end: 20190124
  6. EBRANTIL (URAPIDIL) [Suspect]
     Active Substance: URAPIDIL
     Dosage: 15 MG, QD
     Route: 048
     Dates: start: 20190131
  7. VALTREX [Suspect]
     Active Substance: VALACYCLOVIR HYDROCHLORIDE
     Dosage: 1000 MG, TID
     Route: 048
     Dates: start: 20190121, end: 20190122
  8. FAMOTIDINE. [Suspect]
     Active Substance: FAMOTIDINE
     Indication: GASTRIC ULCER
     Dosage: 10 MG, QD
     Route: 048
     Dates: end: 20190124

REACTIONS (10)
  - Product use issue [Unknown]
  - Altered state of consciousness [Recovered/Resolved with Sequelae]
  - Renal disorder [Unknown]
  - Vomiting [Unknown]
  - Toxic encephalopathy [Recovered/Resolved with Sequelae]
  - Encephalopathy [None]
  - Hypophagia [Unknown]
  - Drug level increased [None]
  - Dialysis [None]
  - Prescribed underdose [Unknown]

NARRATIVE: CASE EVENT DATE: 201901
